FAERS Safety Report 5484019-8 (Version None)
Quarter: 2007Q4

REPORT INFORMATION
  Report Type: 
  Country: None (occurrence: None)
  Receive Date: 20071012
  Receipt Date: 20071003
  Transmission Date: 20080405
  Serious: Yes (Other)
  Sender: FDA-Public Use
  Company Number: GB-JNJFOC-20071001159

PATIENT
  Age: 13 Year
  Sex: Female
  Weight: 38.1 kg

DRUGS (2)
  1. INFLIXIMAB [Suspect]
     Indication: UVEITIS
     Route: 042
  2. MYCOPHENOLATE MOFETIL [Concomitant]
     Indication: UVEITIS
     Route: 048

REACTIONS (2)
  - CHEST DISCOMFORT [None]
  - ERYTHEMA [None]
